FAERS Safety Report 8379332-0 (Version None)
Quarter: 2012Q2

REPORT INFORMATION
  Report Type: 
  Country: None (occurrence: None)
  Receive Date: 20120523
  Receipt Date: 20120518
  Transmission Date: 20120825
  Serious: Yes (Other)
  Sender: FDA-Public Use
  Company Number: PHHY2012TW042108

PATIENT
  Sex: Male
  Weight: 65 kg

DRUGS (3)
  1. ZOLEDRONOC ACID [Suspect]
     Dosage: 4 MG
     Route: 042
     Dates: start: 20110210, end: 20110406
  2. GAR PARMASON [Concomitant]
     Dosage: 200 ML
     Dates: start: 20110504
  3. AMOXICILLIN [Concomitant]
     Dosage: 2000 MG
     Dates: start: 20110418

REACTIONS (7)
  - ERYTHEMA [None]
  - PAIN IN JAW [None]
  - GINGIVAL INFECTION [None]
  - OSTEOMYELITIS [None]
  - SWELLING [None]
  - SOFT TISSUE INFECTION [None]
  - BONE LESION [None]
